FAERS Safety Report 10699853 (Version 1)
Quarter: 2014Q4

REPORT INFORMATION
  Report Type: Spontaneous
  Country: US (occurrence: US)
  Receive Date: 20141001
  Receipt Date: 20141001
  Transmission Date: 20150529
  Serious: Yes (Death)
  Sender: FDA-Public Use
  Company Number: US-APOTEX-2014AP005053

PATIENT
  Sex: Female

DRUGS (1)
  1. FENTANYL. [Suspect]
     Active Substance: FENTANYL
     Indication: SCIATICA
     Dosage: 50 ?G/HR TO BE APPLIED EVERY 48-72 HOURS.
     Route: 062

REACTIONS (2)
  - Death [Fatal]
  - Prescribed overdose [Fatal]
